FAERS Safety Report 5051327-4 (Version None)
Quarter: 2006Q3

REPORT INFORMATION
  Report Type: 
  Country: None (occurrence: None)
  Receive Date: 20060714
  Receipt Date: 19980708
  Transmission Date: 20061208
  Serious: Yes (Other)
  Sender: FDA-Public Use
  Company Number: DE-BRISTOL-MYERS SQUIBB COMPANY-13432679

PATIENT
  Age: 59 Year
  Sex: Male

DRUGS (10)
  1. TAXOL [Suspect]
     Indication: BRONCHIAL CARCINOMA
     Dates: start: 19980401
  2. PLATINEX [Suspect]
     Indication: BRONCHIAL CARCINOMA
     Dates: start: 19971201
  3. VEPESID [Suspect]
     Indication: BRONCHIAL CARCINOMA
     Dates: start: 19971201
  4. GEMCITABINE [Suspect]
     Indication: BRONCHIAL CARCINOMA
     Dates: start: 19980101
  5. LORZAAR PLUS [Concomitant]
     Dates: start: 19980701
  6. CONCOR [Concomitant]
     Dates: start: 19980701
  7. CORANGIN RETARD [Concomitant]
     Dates: start: 19980701
  8. L-THYROXINE [Concomitant]
     Dates: start: 19980701
  9. STANGYL [Concomitant]
     Dates: start: 19980701
  10. PRAVASIN [Concomitant]
     Dates: start: 19980701

REACTIONS (3)
  - HAEMOPTYSIS [None]
  - MALIGNANT NEOPLASM PROGRESSION [None]
  - PARAPROTEINAEMIA [None]
